FAERS Safety Report 19230341 (Version 1)
Quarter: 2021Q2

REPORT INFORMATION
  Report Type: Spontaneous
  Country: GB (occurrence: GB)
  Receive Date: 20210507
  Receipt Date: 20210507
  Transmission Date: 20210717
  Serious: Yes (Other)
  Sender: FDA-Public Use
  Company Number: GB-TEVA-2021-GB-1907598

PATIENT
  Age: 26 Year

DRUGS (2)
  1. HYDROCORTISON [Suspect]
     Active Substance: HYDROCORTISONE
     Indication: ECZEMA
     Dosage: AS AND WHEN NEEDED. FACE AND BODY. TWICE DAILY DURING FLARE. STOP WHEN NOT.
     Route: 061
     Dates: start: 20181101, end: 20200301
  2. BETNOVATE [Suspect]
     Active Substance: BETAMETHASONE
     Indication: ECZEMA
     Dosage: REPEAT PRESCRIPTION. TO USE AS AND WHEN REQUIRED. FLARE TWICE DAILY. TO STOP WHEN SETTLED.
     Route: 061
     Dates: start: 20181104, end: 20200302

REACTIONS (9)
  - Rash pruritic [Not Recovered/Not Resolved]
  - Hyperaesthesia [Not Recovered/Not Resolved]
  - Skin burning sensation [Not Recovered/Not Resolved]
  - Paraesthesia [Not Recovered/Not Resolved]
  - Skin abrasion [Not Recovered/Not Resolved]
  - Skin swelling [Not Recovered/Not Resolved]
  - Skin exfoliation [Recovered/Resolved with Sequelae]
  - Erythema [Recovered/Resolved with Sequelae]
  - Medication error [Unknown]

NARRATIVE: CASE EVENT DATE: 20200301
